FAERS Safety Report 6410579-6 (Version None)
Quarter: 2009Q4

REPORT INFORMATION
  Report Type: 
  Country: None (occurrence: None)
  Receive Date: 20091016
  Receipt Date: 20091008
  Transmission Date: 20100525
  Serious: Yes (Death)
  Sender: FDA-Public Use
  Company Number: 09US001210

PATIENT
  Sex: Female

DRUGS (1)
  1. PEXEVA [Suspect]
     Indication: DEPRESSION

REACTIONS (1)
  - COMPLETED SUICIDE [None]
